FAERS Safety Report 14673775 (Version 4)
Quarter: 2019Q1

REPORT INFORMATION
  Report Type: Spontaneous
  Country: GB (occurrence: GB)
  Receive Date: 20180323
  Receipt Date: 20190319
  Transmission Date: 20190417
  Serious: Yes (Life-Threatening, Other)
  Sender: FDA-Public Use
  Company Number: GB-PFIZER INC-2018119464

PATIENT
  Age: 62 Year
  Sex: Male
  Weight: 100 kg

DRUGS (5)
  1. CO AMOXICLAV /00756801/ [Suspect]
     Active Substance: AMOXICILLIN\CLAVULANIC ACID
     Indication: SURGERY
     Dosage: 1.2 G, DAILY DOSE
     Route: 042
     Dates: start: 20180215
  2. MIDAZOLAM [Concomitant]
     Active Substance: MIDAZOLAM HYDROCHLORIDE
     Dosage: UNK
     Dates: start: 20180215
  3. FENTANYL CITRATE. [Suspect]
     Active Substance: FENTANYL CITRATE
     Indication: GENERAL ANAESTHESIA
     Dosage: 150 UG, DAILY
     Route: 042
     Dates: start: 20180215
  4. PROPOFOL HOSPIRA [Suspect]
     Active Substance: PROPOFOL
     Indication: GENERAL ANAESTHESIA
     Dosage: 200 MG, DAILY
     Route: 042
     Dates: start: 20180215, end: 20180215
  5. AMOXICILLIN SODIUM, CLAVULANATE POTASSIUM [Concomitant]
     Indication: GENERAL ANAESTHESIA
     Dosage: UNK
     Route: 048
     Dates: start: 20180215, end: 20180215

REACTIONS (5)
  - Cardio-respiratory arrest [Unknown]
  - Hypotension [Recovered/Resolved]
  - Myocardial infarction [Recovered/Resolved]
  - Cardiac disorder [Not Recovered/Not Resolved]
  - Anaphylactic shock [Unknown]

NARRATIVE: CASE EVENT DATE: 20180215
